FAERS Safety Report 13340723 (Version 1)
Quarter: 2017Q1

REPORT INFORMATION
  Report Type: Spontaneous
  Country: US (occurrence: US)
  Receive Date: 20170316
  Receipt Date: 20170316
  Transmission Date: 20170428
  Serious: Yes (Other)
  Sender: FDA-Public Use
  Company Number: US-009507513-1703USA006046

PATIENT
  Age: 19 Year
  Sex: Male

DRUGS (1)
  1. REVERSOL [Suspect]
     Active Substance: EDROPHONIUM CHLORIDE
     Indication: MYASTHENIA GRAVIS
     Dosage: 100 MG / 10 ML
     Route: 042

REACTIONS (2)
  - Cholinergic syndrome [Recovered/Resolved]
  - Accidental overdose [Unknown]
